FAERS Safety Report 8682716 (Version 3)
Quarter: 2013Q1

REPORT INFORMATION
  Report Type: Spontaneous
  Country: US (occurrence: US)
  Receive Date: 20120725
  Receipt Date: 20130116
  Transmission Date: 20140127
  Serious: Yes (Hospitalization, Other)
  Sender: FDA-Public Use
  Company Number: US-009507513-1207USA004233

PATIENT
  Sex: 0

DRUGS (2)
  1. FOSAMAX [Suspect]
     Indication: OSTEOPENIA
     Dosage: 70 MG, UNK
     Route: 048
     Dates: start: 200501, end: 20080317
  2. FOSAMAX [Suspect]
     Indication: OSTEOPENIA
     Dosage: 70 MG, UNK
     Route: 048
     Dates: start: 20080317, end: 20100710

REACTIONS (20)
  - Open reduction of fracture [Unknown]
  - Femur fracture [Unknown]
  - External fixation of fracture [Unknown]
  - Femur fracture [Not Recovered/Not Resolved]
  - Low turnover osteopathy [Unknown]
  - Wrist fracture [Unknown]
  - Asthma [Unknown]
  - Adverse event [Unknown]
  - Gait disturbance [Unknown]
  - Intervertebral disc degeneration [Unknown]
  - Pollakiuria [Unknown]
  - Osteoarthritis [Not Recovered/Not Resolved]
  - Groin pain [Unknown]
  - Back pain [Unknown]
  - Joint arthroplasty [Unknown]
  - Knee operation [Unknown]
  - Diabetes mellitus [Recovered/Resolved]
  - Fall [Unknown]
  - Impaired healing [Unknown]
  - Rotator cuff syndrome [Unknown]
